FAERS Safety Report 13697470 (Version 1)
Quarter: 2017Q2

REPORT INFORMATION
  Report Type: Spontaneous
  Country: FR (occurrence: FR)
  Receive Date: 20170628
  Receipt Date: 20170628
  Transmission Date: 20170830
  Serious: Yes (Other)
  Sender: FDA-Public Use
  Company Number: FR-PFIZER INC-2017279689

PATIENT
  Age: 66 Year
  Sex: Male

DRUGS (9)
  1. AMOXICILLIN. [Suspect]
     Active Substance: AMOXICILLIN
     Dosage: 500 MG, TID
     Route: 048
     Dates: start: 20170301
  2. AMLODIPINE [Concomitant]
     Active Substance: AMLODIPINE BESYLATE
     Dosage: 5 MG, UNK
  3. INIPOMP [Suspect]
     Active Substance: PANTOPRAZOLE SODIUM
     Dosage: 20 MG, QD
     Route: 048
     Dates: start: 20170301
  4. URSODEOXYCHOLIC ACID [Suspect]
     Active Substance: URSODIOL
     Dosage: 250 MG, TID
     Route: 048
     Dates: start: 20170301
  5. CICLOSPORIN [Suspect]
     Active Substance: CYCLOSPORINE
     Dosage: 150 MG, QD
     Route: 048
     Dates: start: 20170301
  6. NYSTATIN. [Suspect]
     Active Substance: NYSTATIN
     Dosage: 24 ML, TID
     Route: 048
     Dates: start: 20170301
  7. NUTRIENTS NOS [Concomitant]
     Active Substance: UNSPECIFIED INGREDIENT
     Dosage: UNK
  8. VALACICLOVIR [Suspect]
     Active Substance: VALACYCLOVIR HYDROCHLORIDE
     Dosage: 450 MG, QID
     Route: 048
     Dates: start: 20170301
  9. SULFAMETHOXAZOLE W/TRIMETHOPRIM [Suspect]
     Active Substance: SULFAMETHOXAZOLE\TRIMETHOPRIM
     Dosage: UNK UNK, 3/WEEK
     Route: 048
     Dates: start: 20170301

REACTIONS (4)
  - Erythema [Unknown]
  - Tremor [Unknown]
  - Anaemia [Unknown]
  - Oedema peripheral [Unknown]

NARRATIVE: CASE EVENT DATE: 20170407
